FAERS Safety Report 6698137-X (Version None)
Quarter: 2010Q2

REPORT INFORMATION
  Report Type: 
  Country: None (occurrence: None)
  Receive Date: 20100427
  Receipt Date: 20100416
  Transmission Date: 20101027
  Serious: Yes (Hospitalization)
  Sender: FDA-Public Use
  Company Number: AU-PFIZER INC-2008096448

PATIENT
  Age: 60 Year
  Sex: Male
  Weight: 73 kg

DRUGS (5)
  1. SUNITINIB MALATE [Suspect]
     Indication: COLORECTAL CANCER
     Dosage: 25 MG, 1X/DAY
     Route: 048
     Dates: start: 20080116
  2. IRINOTECAN HCL [Suspect]
     Indication: COLORECTAL CANCER
     Dosage: 190 MG, EVERY 2 WEEKS
     Route: 042
     Dates: start: 20080116, end: 20080624
  3. FLUOROURACIL [Suspect]
     Indication: COLORECTAL CANCER
     Dosage: 450 MG, EVERY 2 WEEKS
     Route: 040
     Dates: start: 20080116, end: 20080626
  4. FLUOROURACIL [Suspect]
     Dosage: 2800 MG, EVERY 2 WEEKS
     Route: 041
     Dates: start: 20080116, end: 20080626
  5. CALCIUM FOLINATE [Suspect]
     Indication: COLORECTAL CANCER
     Dosage: 370 MG, EVERY 2 WEEKS
     Route: 042
     Dates: start: 20080116, end: 20080624

REACTIONS (1)
  - HAEMATURIA [None]
